FAERS Safety Report 21458589 (Version 1)
Quarter: 2022Q4

REPORT INFORMATION
  Report Type: Report from Study
  Country: US (occurrence: None)
  Receive Date: 20221014
  Receipt Date: 20221014
  Transmission Date: 20230113
  Serious: Yes (Other)
  Sender: FDA-Public Use
  Company Number: 2022A279065

PATIENT
  Sex: Female

DRUGS (2)
  1. LYNPARZA [Suspect]
     Active Substance: OLAPARIB
     Indication: Ovarian cancer
     Route: 048
     Dates: start: 20220528
  2. LYNPARZA [Suspect]
     Active Substance: OLAPARIB
     Indication: Ovarian cancer
     Route: 048
     Dates: start: 20220528

REACTIONS (11)
  - Osteonecrosis of jaw [Not Recovered/Not Resolved]
  - Influenza [Unknown]
  - Gingival bleeding [Not Recovered/Not Resolved]
  - Laryngitis [Not Recovered/Not Resolved]
  - Arthralgia [Unknown]
  - Abdominal distension [Unknown]
  - Pelvic pain [Unknown]
  - Discharge [Unknown]
  - Osteoporosis [Not Recovered/Not Resolved]
  - Headache [Unknown]
  - Asthenia [Unknown]
